FAERS Safety Report 20369836 (Version 2)
Quarter: 2022Q1

REPORT INFORMATION
  Report Type: Spontaneous
  Country: US (occurrence: None)
  Receive Date: 20220124
  Receipt Date: 20220126
  Transmission Date: 20220423
  Serious: Yes (Death, Hospitalization, Other)
  Sender: FDA-Public Use
  Company Number: US-ROCHE-3001822

PATIENT
  Age: 79 Year
  Sex: Female
  Weight: 104 kg

DRUGS (9)
  1. ACTEMRA [Suspect]
     Active Substance: TOCILIZUMAB
     Indication: COVID-19
     Route: 042
     Dates: start: 20220109, end: 20220109
  2. ACTEMRA [Suspect]
     Active Substance: TOCILIZUMAB
     Route: 042
     Dates: start: 20220109, end: 20220109
  3. REMDESIVIR [Concomitant]
     Active Substance: REMDESIVIR
     Dates: start: 20220108, end: 20220109
  4. DEXAMETHASONE [Concomitant]
     Active Substance: DEXAMETHASONE
     Dates: start: 20220108, end: 20220111
  5. HYDROXYCHLOROQUINE [Concomitant]
     Active Substance: HYDROXYCHLOROQUINE
  6. CEPHALEXIN [Concomitant]
     Active Substance: CEPHALEXIN
  7. AZITHROMYCIN [Concomitant]
     Active Substance: AZITHROMYCIN
  8. MELATONIN [Concomitant]
     Active Substance: MELATONIN
     Dosage: EVERY NIGHT AT BEDTIME AS NEEDED
  9. XANAX [Concomitant]
     Active Substance: ALPRAZOLAM

REACTIONS (5)
  - Acute respiratory failure [Fatal]
  - Dyspnoea [Unknown]
  - Productive cough [Unknown]
  - Wheezing [Unknown]
  - Off label use [Unknown]
